FAERS Safety Report 9026018 (Version 1)
Quarter: 2012Q4

REPORT INFORMATION
  Report Type: Spontaneous
  Country: US (occurrence: None)
  Receive Date: 20121214
  Receipt Date: 20121214
  Transmission Date: 20130627
  Serious: Yes (Other)
  Sender: FDA-Public Use
  Company Number: None

PATIENT
  Sex: Female
  Weight: 75.3 kg

DRUGS (1)
  1. TOPIRAMATE [Suspect]
     Indication: EPILEPSY
     Dosage: Take PO 3 tabs QAM and 2 tabs PO QPM

REACTIONS (4)
  - Convulsion [None]
  - Depression [None]
  - Weight increased [None]
  - Product substitution issue [None]
